FAERS Safety Report 7459086-2 (Version None)
Quarter: 2011Q2

REPORT INFORMATION
  Report Type: 
  Country: None (occurrence: None)
  Receive Date: 20110505
  Receipt Date: 20110427
  Transmission Date: 20111010
  Serious: No
  Sender: FDA-Public Use
  Company Number: US-BIOGENIDEC-2011BI015894

PATIENT
  Age: 53 Year
  Sex: Female

DRUGS (1)
  1. TYSABRI [Suspect]
     Indication: MULTIPLE SCLEROSIS
     Route: 042
     Dates: start: 20080212

REACTIONS (6)
  - SPONDYLITIS [None]
  - POLYARTHRITIS [None]
  - TEETH BRITTLE [None]
  - MUSCULOSKELETAL DISORDER [None]
  - IMPAIRED HEALING [None]
  - STRESS [None]
